FAERS Safety Report 8046532-9 (Version None)
Quarter: 2012Q1

REPORT INFORMATION
  Report Type: 
  Country: None (occurrence: None)
  Receive Date: 20120113
  Receipt Date: 20120105
  Transmission Date: 20120608
  Serious: Yes (Hospitalization, Disabling, Other)
  Sender: FDA-Public Use
  Company Number: US-MERCK-1107USA03461

PATIENT
  Age: 60 Year
  Sex: Female

DRUGS (6)
  1. FOSAMAX [Suspect]
     Indication: OSTEOPOROSIS
     Route: 048
     Dates: start: 19980301, end: 19980901
  2. VITAMIN E [Concomitant]
     Route: 065
     Dates: start: 19970101, end: 20020101
  3. FOSAMAX [Suspect]
     Route: 048
     Dates: start: 20020401, end: 20070501
  4. BONIVA [Suspect]
     Route: 048
  5. CALCIUM (UNSPECIFIED) AND VITAMIN D (UNSPECIFIED) [Concomitant]
     Route: 065
     Dates: start: 19970101, end: 20090101
  6. VITAMINS (UNSPECIFIED) [Concomitant]
     Route: 065
     Dates: start: 19970101

REACTIONS (12)
  - FEMUR FRACTURE [None]
  - FRACTURE NONUNION [None]
  - BLOOD CHOLESTEROL INCREASED [None]
  - WRIST FRACTURE [None]
  - HYPOPARATHYROIDISM [None]
  - LOW TURNOVER OSTEOPATHY [None]
  - HYPOTHYROIDISM [None]
  - ANXIETY [None]
  - FUNGAL INFECTION [None]
  - DEVICE FAILURE [None]
  - OVARIAN CANCER [None]
  - FALL [None]
